FAERS Safety Report 6384902-5 (Version None)
Quarter: 2009Q4

REPORT INFORMATION
  Report Type: 
  Country: None (occurrence: None)
  Receive Date: 20091002
  Receipt Date: 20090909
  Transmission Date: 20100525
  Serious: No
  Sender: FDA-Public Use
  Company Number: US-BAYER-200931812NA

PATIENT
  Age: 76 Year
  Sex: Female

DRUGS (3)
  1. CIPRO [Suspect]
     Indication: URINARY TRACT INFECTION
     Dates: start: 20090726, end: 20090803
  2. AMBIEN [Concomitant]
  3. RITALIN [Concomitant]

REACTIONS (1)
  - DYSPHONIA [None]
